FAERS Safety Report 10480334 (Version 1)
Quarter: 2014Q3

REPORT INFORMATION
  Report Type: Spontaneous
  Country: CM (occurrence: CM)
  Receive Date: 20140929
  Receipt Date: 20140929
  Transmission Date: 20150326
  Serious: Yes (Life-Threatening, Hospitalization, Disabling, Other)
  Sender: FDA-Public Use
  Company Number: CM-009507513-1409CMR008503

PATIENT
  Age: 43 Year
  Sex: Male

DRUGS (3)
  1. MECTIZAN [Suspect]
     Active Substance: IVERMECTIN
     Indication: FILARIASIS LYMPHATIC
     Dosage: 2 DF, UNK
     Route: 048
     Dates: start: 20140802
  2. MECTIZAN [Suspect]
     Active Substance: IVERMECTIN
     Dosage: DOSE OF MECTIZAN: 2 TABLETS
     Route: 048
     Dates: start: 20140802
  3. ALBENDAZOLE [Suspect]
     Active Substance: ALBENDAZOLE
     Indication: FILARIASIS LYMPHATIC
     Dosage: 1 DF, UNK
     Route: 048
     Dates: start: 20140802

REACTIONS (4)
  - Conjunctival haemorrhage [Not Recovered/Not Resolved]
  - Coma [Recovered/Resolved]
  - Abasia [Not Recovered/Not Resolved]
  - Headache [Not Recovered/Not Resolved]

NARRATIVE: CASE EVENT DATE: 20140804
